FAERS Safety Report 9834347 (Version 1)
Quarter: 2014Q1

REPORT INFORMATION
  Report Type: Spontaneous
  Country: AU (occurrence: AU)
  Receive Date: 20140122
  Receipt Date: 20140122
  Transmission Date: 20141002
  Serious: Yes (Other)
  Sender: FDA-Public Use
  Company Number: AU-MYLANLABS-2014S1000769

PATIENT
  Age: 30 Year
  Sex: Male

DRUGS (7)
  1. MERCAPTOPURINE [Suspect]
     Indication: CROHN^S DISEASE
     Dosage: 100MG (1.5MG/KG) DAILY
     Route: 065
  2. CERTOLIZUMAB PEGOL [Concomitant]
     Route: 065
  3. SIROLIMUS [Concomitant]
     Route: 065
  4. PREDNISONE [Concomitant]
     Dosage: INTERMITTENT COURSES FOR FOUR DOSES
     Route: 065
  5. INFLIXIMAB [Concomitant]
     Dosage: INTERMITTENT COURSES FOR FOUR DOSES
     Route: 065
  6. METRONIDAZOLE [Concomitant]
     Route: 065
  7. CIPROFLOXACIN [Concomitant]
     Route: 065

REACTIONS (1)
  - Epstein-Barr virus associated lymphoma [Recovered/Resolved]
